FAERS Safety Report 20912936 (Version 1)
Quarter: 2022Q2

REPORT INFORMATION
  Report Type: Spontaneous
  Country: GB (occurrence: GB)
  Receive Date: 20220603
  Receipt Date: 20220603
  Transmission Date: 20220721
  Serious: Yes (Hospitalization)
  Sender: FDA-Public Use
  Company Number: GB-MHRA-MED-202205201440268040-KJOE1

PATIENT

DRUGS (4)
  1. ZYPADHERA [Suspect]
     Active Substance: OLANZAPINE PAMOATE
     Indication: Adverse drug reaction
     Dosage: 405 MG, OTHER (EVERY 4 WEEK)
     Route: 030
     Dates: start: 20220115
  2. ZYPADHERA [Suspect]
     Active Substance: OLANZAPINE PAMOATE
     Indication: Adverse drug reaction
     Dosage: 405 MG, OTHER (EVERY 4 WEEK)
     Route: 030
     Dates: start: 20220115
  3. ZYPADHERA [Suspect]
     Active Substance: OLANZAPINE PAMOATE
     Indication: Adverse drug reaction
     Dosage: 405 MG, OTHER (EVERY 4 WEEK)
     Route: 030
     Dates: start: 20220115
  4. SERTRALINE [Concomitant]
     Active Substance: SERTRALINE HYDROCHLORIDE
     Indication: Depression
     Dosage: UNK

REACTIONS (1)
  - Post procedural complication [Recovered/Resolved]

NARRATIVE: CASE EVENT DATE: 20220518
